FAERS Safety Report 13776409 (Version 2)
Quarter: 2018Q3

REPORT INFORMATION
  Report Type: Report from Study
  Country: JP (occurrence: JP)
  Receive Date: 20170720
  Receipt Date: 20180717
  Transmission Date: 20181010
  Serious: Yes (Other)
  Sender: FDA-Public Use
  Company Number: PHJP2017JP022655

PATIENT
  Age: 1 Year
  Sex: Male
  Weight: 7.8 kg

DRUGS (20)
  1. ILARIS [Suspect]
     Active Substance: CANAKINUMAB
     Indication: CRYOPYRIN ASSOCIATED PERIODIC SYNDROME
     Dosage: 16.5 MG, UNK
     Route: 058
     Dates: start: 20150728, end: 20150728
  2. ILARIS [Suspect]
     Active Substance: CANAKINUMAB
     Dosage: 37.5 MG, UNK
     Route: 058
     Dates: start: 20160902, end: 20160902
  3. ILARIS [Suspect]
     Active Substance: CANAKINUMAB
     Dosage: 42 MG, UNK
     Route: 058
     Dates: start: 20170220, end: 20170220
  4. HIRUDOID [Concomitant]
     Active Substance: GLYCOSAMINOGLYCANS
     Indication: DERMATITIS ATOPIC
     Dosage: AS APPROPRIATE, UNK
     Dates: start: 20150611
  5. ILARIS [Suspect]
     Active Substance: CANAKINUMAB
     Dosage: 18 MG, UNK
     Route: 058
     Dates: start: 20150928, end: 20150928
  6. ILARIS [Suspect]
     Active Substance: CANAKINUMAB
     Dosage: 21 MG, UNK
     Route: 058
     Dates: start: 20160311, end: 20160311
  7. ILARIS [Suspect]
     Active Substance: CANAKINUMAB
     Dosage: 42 MG, UNK
     Route: 058
     Dates: start: 20170417
  8. RESTAMIN [Concomitant]
     Active Substance: DIPHENHYDRAMINE
     Indication: DERMATITIS ATOPIC
     Dosage: AS APPROPRIATE, UNK
     Route: 061
     Dates: start: 20150605
  9. INCREMIN [Concomitant]
     Active Substance: FERRIC PYROPHOSPHATE
     Indication: IRON DEFICIENCY ANAEMIA
     Dosage: 18 MG, UNK
     Route: 048
     Dates: start: 20150612, end: 20150730
  10. ATROPINE. [Concomitant]
     Active Substance: ATROPINE
     Indication: PRODUCT USED FOR UNKNOWN INDICATION
     Dosage: 0.05 MG, UNK
     Route: 065
     Dates: start: 20150925, end: 20150925
  11. ILARIS [Suspect]
     Active Substance: CANAKINUMAB
     Indication: CHRONIC INFANTILE NEUROLOGICAL CUTANEOUS AND ARTICULAR SYNDROME
     Dosage: 16.5 MG, UNK
     Route: 058
     Dates: start: 20150601, end: 20150601
  12. ILARIS [Suspect]
     Active Substance: CANAKINUMAB
     Dosage: 21 MG, UNK
     Route: 058
     Dates: start: 20160502, end: 20160502
  13. LOCOID [Concomitant]
     Active Substance: HYDROCORTISONE BUTYRATE
     Indication: DERMATITIS ATOPIC
     Dosage: AS APPROPRIATE, UNK
     Route: 061
     Dates: start: 20150611
  14. ILARIS [Suspect]
     Active Substance: CANAKINUMAB
     Dosage: 37.5 MG, UNK
     Route: 058
     Dates: start: 20160620, end: 20160620
  15. ILARIS [Suspect]
     Active Substance: CANAKINUMAB
     Dosage: 40.5 MG, UNK
     Route: 058
     Dates: start: 20161219, end: 20161219
  16. ISOZOL [Concomitant]
     Active Substance: THIAMYLAL SODIUM
     Indication: PRODUCT USED FOR UNKNOWN INDICATION
     Dosage: UNK
     Route: 065
     Dates: start: 20150925, end: 20150925
  17. ILARIS [Suspect]
     Active Substance: CANAKINUMAB
     Dosage: 21 MG, UNK
     Route: 058
     Dates: start: 20160115, end: 20160115
  18. TAMIFLU [Concomitant]
     Active Substance: OSELTAMIVIR PHOSPHATE
     Indication: ANTIVIRAL PROPHYLAXIS
     Dosage: 0.6 G, UNK
     Route: 048
     Dates: start: 20170212, end: 20170221
  19. ILARIS [Suspect]
     Active Substance: CANAKINUMAB
     Dosage: 40.5 MG, UNK
     Route: 058
     Dates: start: 20161028, end: 20161028
  20. ILARIS [Suspect]
     Active Substance: CANAKINUMAB
     Dosage: 19.5 MG, UNK
     Route: 058
     Dates: start: 20151120, end: 20151120

REACTIONS (12)
  - Bronchitis [Recovered/Resolved]
  - Cough [Unknown]
  - Pyrexia [Recovered/Resolved]
  - Monocyte count decreased [Unknown]
  - Pneumonia mycoplasmal [Recovered/Resolved]
  - Wheezing [Unknown]
  - Astigmatism [Unknown]
  - Cough [Unknown]
  - Increased viscosity of upper respiratory secretion [Unknown]
  - Neutrophil count decreased [Unknown]
  - Mycoplasma test positive [Unknown]
  - Pyrexia [Unknown]

NARRATIVE: CASE EVENT DATE: 201608
